FAERS Safety Report 7798022-6 (Version None)
Quarter: 2011Q4

REPORT INFORMATION
  Report Type: 
  Country: None (occurrence: None)
  Receive Date: 20111004
  Receipt Date: 20111004
  Transmission Date: 20120403
  Serious: Yes (Hospitalization)
  Sender: FDA-Public Use
  Company Number: None

PATIENT
  Sex: Female
  Weight: 53.0709 kg

DRUGS (1)
  1. AMITRIPTYLINE HCL [Suspect]
     Indication: CYSTITIS INTERSTITIAL
     Dosage: 3/4 TABLETS DAILY @ NIGHT
     Dates: start: 20110401, end: 20110731

REACTIONS (7)
  - IMPRISONMENT [None]
  - LEGAL PROBLEM [None]
  - DRUG INTERACTION [None]
  - ALCOHOL USE [None]
  - NIGHTMARE [None]
  - ANGER [None]
  - VIOLENCE-RELATED SYMPTOM [None]
